FAERS Safety Report 10638572 (Version 2)
Quarter: 2014Q4

REPORT INFORMATION
  Report Type: Spontaneous
  Country: US (occurrence: US)
  Receive Date: 20141208
  Receipt Date: 20141208
  Transmission Date: 20150529
  Serious: Yes (Other)
  Sender: FDA-Public Use
  Company Number: PHEH2014US021500

PATIENT
  Age: 48 Year
  Sex: Female
  Weight: 50.8 kg

DRUGS (10)
  1. BACLOFEN. [Suspect]
     Active Substance: BACLOFEN
     Indication: MUSCULOSKELETAL STIFFNESS
     Dosage: 10 MG, TID
     Route: 048
  2. MULTI VITAMIN [Concomitant]
     Active Substance: VITAMINS
     Indication: PRODUCT USED FOR UNKNOWN INDICATION
     Route: 065
  3. CLARITIN [Concomitant]
     Active Substance: LORATADINE
     Indication: PRODUCT USED FOR UNKNOWN INDICATION
     Route: 065
  4. BETHANECHOL [Concomitant]
     Active Substance: BETHANECHOL
     Indication: PRODUCT USED FOR UNKNOWN INDICATION
     Dosage: 50 MG, TID
     Route: 048
  5. MACROBID [Concomitant]
     Active Substance: NITROFURANTOIN\NITROFURANTOIN MONOHYDRATE
     Indication: PRODUCT USED FOR UNKNOWN INDICATION
     Route: 065
  6. 4-AMINOPYRIDINE [Concomitant]
     Active Substance: DALFAMPRIDINE
     Indication: PRODUCT USED FOR UNKNOWN INDICATION
     Dosage: 20 MG, BID
     Route: 048
  7. BACLOFEN. [Suspect]
     Active Substance: BACLOFEN
     Indication: MUSCLE SPASMS
  8. FLAXSEED [Concomitant]
     Active Substance: FLAX SEED
     Indication: PRODUCT USED FOR UNKNOWN INDICATION
     Route: 065
  9. GILENYA [Suspect]
     Active Substance: FINGOLIMOD HYDROCHLORIDE
     Indication: PRODUCT USED FOR UNKNOWN INDICATION
     Dosage: UNK
     Route: 065
     Dates: start: 20130612, end: 201409
  10. VALTREX [Concomitant]
     Active Substance: VALACYCLOVIR HYDROCHLORIDE
     Indication: PRODUCT USED FOR UNKNOWN INDICATION
     Route: 065

REACTIONS (16)
  - Muscle spasms [Unknown]
  - Gait disturbance [Unknown]
  - Feeling abnormal [Unknown]
  - Fall [Unknown]
  - Muscle spasticity [Unknown]
  - Multiple sclerosis [Unknown]
  - Fatigue [Unknown]
  - Optic neuritis [Unknown]
  - Musculoskeletal stiffness [Unknown]
  - Visual acuity reduced [Unknown]
  - Anxiety [Unknown]
  - Gait spastic [Unknown]
  - Somnolence [Unknown]
  - Head injury [Unknown]
  - Maculopathy [Unknown]
  - Peroneal nerve palsy [Unknown]

NARRATIVE: CASE EVENT DATE: 20141022
